FAERS Safety Report 10120766 (Version 2)
Quarter: 2014Q4

REPORT INFORMATION
  Report Type: Other
  Country: US (occurrence: US)
  Receive Date: 20140425
  Receipt Date: 20141231
  Transmission Date: 20150528
  Serious: Yes (Hospitalization, Other)
  Sender: FDA-Public Use
  Company Number: US-GSKPPD-2014GSK009555

PATIENT
  Age: 79 Year
  Sex: Female

DRUGS (6)
  1. AVANDIA [Suspect]
     Active Substance: ROSIGLITAZONE MALEATE
     Indication: DIABETES MELLITUS
     Dosage: AVANDIA WAS NOT LISTED AMONG THE PATIENTS RECORDS REVIEWED.
     Route: 048
  2. ENTERIC COATED ASPIRIN [Concomitant]
     Active Substance: ASPIRIN
  3. LASIX [Suspect]
     Active Substance: FUROSEMIDE
  4. COUMADIN [Concomitant]
     Active Substance: WARFARIN SODIUM
  5. LANOXIN [Concomitant]
     Active Substance: DIGOXIN
  6. NITROPATCH [Concomitant]

REACTIONS (2)
  - Myocardial infarction [Unknown]
  - Cardiac failure congestive [Recovered/Resolved]

NARRATIVE: CASE EVENT DATE: 19991203
